FAERS Safety Report 7668589-7 (Version None)
Quarter: 2011Q3

REPORT INFORMATION
  Report Type: 
  Country: None (occurrence: None)
  Receive Date: 20110808
  Receipt Date: 20110808
  Transmission Date: 20111222
  Serious: Yes (Hospitalization)
  Sender: FDA-Public Use
  Company Number: None

PATIENT
  Age: 72 Year
  Sex: Male
  Weight: 48.534 kg

DRUGS (2)
  1. GEMCITABINE [Suspect]
  2. ERLOTINIB HYDROCHLORIDE [Concomitant]

REACTIONS (3)
  - BODY TEMPERATURE INCREASED [None]
  - DIARRHOEA [None]
  - CLOSTRIDIUM TEST POSITIVE [None]
